FAERS Safety Report 6390883-0 (Version None)
Quarter: 2009Q4

REPORT INFORMATION
  Report Type: 
  Country: None (occurrence: None)
  Receive Date: 20091003
  Receipt Date: 20090901
  Transmission Date: 20100525
  Serious: Yes (Other)
  Sender: FDA-Public Use
  Company Number: 2009-1258

PATIENT
  Age: 60 Year
  Sex: Female

DRUGS (1)
  1. DYSPORT [Suspect]
     Indication: PAIN
     Dosage: (100 UNITS, SINGLE CYCLE THERAPY)
     Dates: start: 20090601, end: 20090601

REACTIONS (1)
  - MYOCARDIAL ISCHAEMIA [None]
